FAERS Safety Report 12069818 (Version 1)
Quarter: 2016Q1

REPORT INFORMATION
  Report Type: Spontaneous
  Country: HR (occurrence: HR)
  Receive Date: 20160211
  Receipt Date: 20160211
  Transmission Date: 20160526
  Serious: Yes (Life-Threatening, Hospitalization)
  Sender: FDA-Public Use
  Company Number: HR-ASTRAZENECA-2016SE12863

PATIENT
  Age: 56 Year
  Sex: Male
  Weight: 113 kg

DRUGS (7)
  1. FURSEMID [Concomitant]
     Active Substance: FUROSEMIDE
     Dosage: EVERY OTHER DAY
     Route: 048
  2. BETALOC ZOK [Concomitant]
     Active Substance: METOPROLOL SUCCINATE
     Route: 048
  3. PIRAMIL HL [Concomitant]
     Dosage: TWO TIMES A DAY
     Route: 048
  4. KALINOR [Concomitant]
     Active Substance: POTASSIUM CITRATE
     Route: 048
  5. FORXIGA [Suspect]
     Active Substance: DAPAGLIFLOZIN
     Indication: TYPE 2 DIABETES MELLITUS
     Route: 048
     Dates: start: 201504, end: 201512
  6. MARTEFARIN [Concomitant]
     Active Substance: WARFARIN
     Dosage: EVERY DAY
     Route: 048
  7. NOLPAZA [Concomitant]
     Active Substance: PANTOPRAZOLE SODIUM
     Dosage: EVERY DAY
     Route: 048

REACTIONS (1)
  - Cardiac failure [Recovering/Resolving]

NARRATIVE: CASE EVENT DATE: 201512
